FAERS Safety Report 23466344 (Version 1)
Quarter: 2024Q1

REPORT INFORMATION
  Report Type: Spontaneous
  Country: US (occurrence: None)
  Receive Date: 20240131
  Receipt Date: 20240131
  Transmission Date: 20240410
  Serious: Yes (Death)
  Sender: FDA-Public Use
  Company Number: None

PATIENT
  Age: 63 Year
  Sex: Female

DRUGS (4)
  1. TACROLIMUS [Suspect]
     Active Substance: TACROLIMUS
     Indication: Heart and lung transplant
     Dosage: FREQUENCY : EVERY 12 HOURS;?
     Route: 048
     Dates: start: 20210715
  2. TACROLIMUS [Suspect]
     Active Substance: TACROLIMUS
     Indication: Heart and lung transplant
     Dosage: FREQUENCY : DAILY;?
     Route: 048
     Dates: start: 20220419
  3. COMPLETE MULTIVIT/MULTIMINERAL LIQ [Concomitant]
  4. MELATONIN [Concomitant]
     Active Substance: MELATONIN

REACTIONS (1)
  - Death [None]

NARRATIVE: CASE EVENT DATE: 20231119
